FAERS Safety Report 16945205 (Version 1)
Quarter: 2019Q4

REPORT INFORMATION
  Report Type: Spontaneous
  Country: GB (occurrence: GB)
  Receive Date: 20191022
  Receipt Date: 20191022
  Transmission Date: 20200122
  Serious: Yes (Other)
  Sender: FDA-Public Use
  Company Number: GB-PFIZER INC-2019448774

PATIENT
  Age: 64 Year
  Sex: Male

DRUGS (4)
  1. HEPARIN CALCIUM [Interacting]
     Active Substance: HEPARIN CALCIUM
     Indication: ANTICOAGULANT THERAPY
     Dosage: 5000 IU, 2X/DAY (5000 UNITS EVERY 12 HOURS)
     Route: 058
  2. DIAMORPHINE [Concomitant]
     Active Substance: DIAMORPHINE
     Dosage: UNK
  3. GLIPIZIDE. [Suspect]
     Active Substance: GLIPIZIDE
     Indication: DIABETES MELLITUS
     Dosage: 5 MG, DAILY
  4. GLIPIZIDE. [Interacting]
     Active Substance: GLIPIZIDE
     Dosage: 5 MG, (ONE DOSE)

REACTIONS (4)
  - Hypoglycaemia [Recovered/Resolved]
  - Drug interaction [Recovered/Resolved]
  - Hyperinsulinaemia [Recovered/Resolved]
  - Seizure [Recovered/Resolved]
